FAERS Safety Report 21704632 (Version 2)
Quarter: 2023Q4

REPORT INFORMATION
  Report Type: Spontaneous
  Country: DE (occurrence: DE)
  Receive Date: 20221209
  Receipt Date: 20231113
  Transmission Date: 20240110
  Serious: Yes (Other)
  Sender: FDA-Public Use
  Company Number: DE-EMBRYOTOX-202109760

PATIENT
  Age: 1 Day
  Sex: Male
  Weight: 2.65 kg

DRUGS (14)
  1. METOPROLOL [Suspect]
     Active Substance: METOPROLOL
     Indication: Product used for unknown indication
     Dosage: 37.5 [MG/D (12.5-0-25) ]
     Route: 064
     Dates: start: 20210204, end: 20211028
  2. METOPROLOL [Suspect]
     Active Substance: METOPROLOL
     Route: 064
     Dates: start: 20220301, end: 20221129
  3. AMITRIPTYLINE [Suspect]
     Active Substance: AMITRIPTYLINE
     Indication: Product used for unknown indication
     Dosage: 30 [MG/D ]/ REDUCED TO 10 MG/D DURING PREGNANCY COURSE
     Route: 064
     Dates: start: 20220301, end: 20221129
  4. Comirnaty monovalent (BioNTech/Pfizer) [Concomitant]
     Indication: Product used for unknown indication
     Route: 064
     Dates: start: 20210811, end: 20210811
  5. Comirnaty monovalent (BioNTech/Pfizer) [Concomitant]
     Indication: COVID-19 immunisation
     Route: 064
     Dates: start: 20210630, end: 20210630
  6. SUMATRIPTAN [Concomitant]
     Active Substance: SUMATRIPTAN
     Indication: Product used for unknown indication
     Route: 064
     Dates: start: 20220301, end: 20221129
  7. vomex a suppositories [Concomitant]
     Indication: Product used for unknown indication
     Dosage: TAKEN AS NEEDED
     Route: 064
     Dates: start: 20220301, end: 20221129
  8. Spikevax monovalent (Moderna) [Concomitant]
     Indication: Product used for unknown indication
     Dosage: 3RD VACCINATION
     Route: 064
  9. NARATRIPTAN [Concomitant]
     Active Substance: NARATRIPTAN HYDROCHLORIDE
     Indication: Product used for unknown indication
     Route: 064
     Dates: start: 20220301, end: 20221129
  10. LEVOTHYROXINE SODIUM [Concomitant]
     Active Substance: LEVOTHYROXINE SODIUM
     Indication: Product used for unknown indication
     Route: 064
     Dates: start: 20220301, end: 20221129
  11. DIPHTHERIA AND TETANUS TOXOIDS AND PERTUSSIS VACCINE ADSORBED NOS [Concomitant]
     Active Substance: DIPHTHERIA AND TETANUS TOXOIDS AND PERTUSSIS VACCINE
     Indication: Product used for unknown indication
     Route: 064
     Dates: start: 20220930, end: 20220930
  12. BOTOX [Concomitant]
     Active Substance: ONABOTULINUMTOXINA
     Indication: Product used for unknown indication
     Route: 064
  13. FOLIC ACID [Concomitant]
     Active Substance: FOLIC ACID
     Indication: Product used for unknown indication
     Route: 064
     Dates: start: 20220301, end: 20220413
  14. LIOTHYRONINE HYDROCHLORIDE [Concomitant]
     Active Substance: LIOTHYRONINE HYDROCHLORIDE
     Indication: Product used for unknown indication
     Route: 064
     Dates: start: 20220301, end: 20220413

REACTIONS (3)
  - Small for dates baby [Recovered/Resolved]
  - Small for dates baby [Recovered/Resolved]
  - Foetal exposure during pregnancy [Unknown]

NARRATIVE: CASE EVENT DATE: 20211001
